FAERS Safety Report 7802151-8 (Version None)
Quarter: 2011Q4

REPORT INFORMATION
  Report Type: 
  Country: None (occurrence: None)
  Receive Date: 20111007
  Receipt Date: 20110928
  Transmission Date: 20120403
  Serious: Yes (Hospitalization)
  Sender: FDA-Public Use
  Company Number: US-JNJFOC-20111000285

PATIENT
  Sex: Female
  Weight: 54.2 kg

DRUGS (10)
  1. MULTI-VITAMINS [Concomitant]
  2. PREDNISONE [Concomitant]
  3. HYDROCORTISONE [Suspect]
     Indication: COLITIS ULCERATIVE
  4. REMICADE [Suspect]
     Indication: INFLAMMATORY BOWEL DISEASE
     Route: 042
     Dates: start: 20110630
  5. REMICADE [Suspect]
     Route: 042
     Dates: start: 20110805
  6. MESALAMINE [Concomitant]
     Indication: INFLAMMATORY BOWEL DISEASE
  7. IRON [Concomitant]
  8. REMICADE [Suspect]
     Route: 042
     Dates: start: 20110713
  9. PRILOSEC [Concomitant]
  10. ANTIBIOTICS [Concomitant]
     Indication: INFLAMMATORY BOWEL DISEASE

REACTIONS (3)
  - DEPRESSION [None]
  - ANXIETY [None]
  - COLITIS ULCERATIVE [None]
